FAERS Safety Report 5648684-4 (Version None)
Quarter: 2008Q1

REPORT INFORMATION
  Report Type: 
  Country: None (occurrence: None)
  Receive Date: 20080304
  Receipt Date: 20080227
  Transmission Date: 20080703
  Serious: Yes (Death)
  Sender: FDA-Public Use
  Company Number: B0507565A

PATIENT
  Age: 82 Year
  Sex: Male
  Weight: 70 kg

DRUGS (2)
  1. ARIXTRA [Suspect]
     Indication: PHLEBITIS
     Dosage: 2.5MG PER DAY
     Route: 058
     Dates: start: 20070302, end: 20070305
  2. DAFALGAN [Concomitant]
     Dosage: 1G THREE TIMES PER DAY
     Route: 065

REACTIONS (2)
  - CIRCULATORY COLLAPSE [None]
  - EMBOLISM [None]
